FAERS Safety Report 7734181-9 (Version None)
Quarter: 2011Q3

REPORT INFORMATION
  Report Type: 
  Country: None (occurrence: None)
  Receive Date: 20110906
  Receipt Date: 20110906
  Transmission Date: 20111222
  Serious: Yes (Other)
  Sender: FDA-Public Use
  Company Number: None

PATIENT
  Sex: Female
  Weight: 60.782 kg

DRUGS (1)
  1. EXEMESTANE [Suspect]
     Indication: BREAST CANCER
     Dosage: 25MG 1X DAILY ORAL
     Route: 048
     Dates: start: 20100901

REACTIONS (3)
  - PRODUCT SUBSTITUTION ISSUE [None]
  - ALOPECIA [None]
  - FEELING ABNORMAL [None]
